FAERS Safety Report 10228327 (Version 1)
Quarter: 2014Q2

REPORT INFORMATION
  Report Type: Spontaneous
  Country: GB (occurrence: GB)
  Receive Date: 20140610
  Receipt Date: 20140610
  Transmission Date: 20141212
  Serious: Yes (Hospitalization)
  Sender: FDA-Public Use
  Company Number: GB-009507513-1406GBR001597

PATIENT
  Age: 51 Year
  Sex: Male

DRUGS (1)
  1. BCG LIVE [Suspect]
     Indication: BLADDER TRANSITIONAL CELL CARCINOMA
     Route: 043

REACTIONS (2)
  - Anosmia [Recovered/Resolved]
  - Disseminated tuberculosis [Recovered/Resolved]
